FAERS Safety Report 22991450 (Version 3)
Quarter: 2023Q4

REPORT INFORMATION
  Report Type: Other
  Country: DE (occurrence: DE)
  Receive Date: 20230927
  Receipt Date: 20231028
  Transmission Date: 20240110
  Serious: Yes (Life-Threatening, Hospitalization, Other)
  Sender: FDA-Public Use
  Company Number: DE-MACLEODS PHARMACEUTICALS US LTD-MAC2021031215

PATIENT

DRUGS (92)
  1. VALSARTAN [Suspect]
     Active Substance: VALSARTAN
     Indication: Hypertension
     Dosage: UNK, (START DATE: UNKNOWN DATE IN 2008)
     Route: 065
  2. IBUPROFEN [Suspect]
     Active Substance: IBUPROFEN
     Indication: Product used for unknown indication
     Dosage: UNK
     Route: 065
  3. PREDNISOLONE [Suspect]
     Active Substance: PREDNISOLONE
     Indication: Hodgkin^s disease
     Dosage: UNK, QD 40 MG MG/M2 (80 MG), DAY 1 ? 14, DAILY
     Route: 065
     Dates: start: 20160113, end: 20160126
  4. ASPIRIN [Suspect]
     Active Substance: ASPIRIN
     Indication: Product used for unknown indication
     Dosage: UNK
     Route: 065
  5. ACETAMINOPHEN [Suspect]
     Active Substance: ACETAMINOPHEN
     Indication: Product used for unknown indication
     Dosage: UNK
     Route: 065
  6. DICLOFENAC [Suspect]
     Active Substance: DICLOFENAC
     Indication: Product used for unknown indication
     Dosage: UNK
     Route: 065
  7. DIAZEPAM [Suspect]
     Active Substance: DIAZEPAM
     Indication: Pain in extremity
     Dosage: UNK UNK, QD 1X 2.5, QD, 1X DAILY (MORNING)
     Route: 065
  8. DIAZEPAM [Suspect]
     Active Substance: DIAZEPAM
     Indication: Back pain
     Dosage: UNK UNK, QD 1X 2.5, QD, 1X DAILY (EVENING)
     Route: 065
  9. DIAZEPAM [Suspect]
     Active Substance: DIAZEPAM
     Dosage: 10 MILLIGRAM
     Route: 065
     Dates: start: 20150608
  10. VALSARTAN [Suspect]
     Active Substance: VALSARTAN
     Indication: Hypertension
     Dosage: UNK (START DATE 07/2014, STOP DATE 10/2014)
     Route: 065
  11. VALSARTAN [Suspect]
     Active Substance: VALSARTAN
     Dosage: 80 MILLIGRAM, (START DATE 07/2014, STOP DATE 10/2014)
     Route: 065
  12. VALSARTAN [Suspect]
     Active Substance: VALSARTAN
     Dosage: 80 MILLIGRAM, QD, START DATE 07/2014, STOP DATE 10/2014
     Route: 065
  13. VALSARTAN [Suspect]
     Active Substance: VALSARTAN
     Dosage: UNK UNK, QD,  START DATE 07/2014, STOP DATE 10/2014
     Route: 065
  14. VALSARTAN [Suspect]
     Active Substance: VALSARTAN
     Dosage: UNK, START DATE 10/2014 STOP DATE:04/2017
     Route: 065
  15. VALSARTAN [Suspect]
     Active Substance: VALSARTAN
     Dosage: UNK
     Route: 065
     Dates: start: 20150415
  16. VALSARTAN [Suspect]
     Active Substance: VALSARTAN
     Dosage: 80 MILLIGRAM
     Route: 065
     Dates: start: 20140707
  17. VALSARTAN [Suspect]
     Active Substance: VALSARTAN
     Dosage: UNK MILLIGRAM
     Route: 065
     Dates: start: 20140707
  18. VALSARTAN [Suspect]
     Active Substance: VALSARTAN
     Dosage: UNK
     Route: 065
     Dates: start: 20141014
  19. VALSARTAN [Suspect]
     Active Substance: VALSARTAN
     Dosage: UNK
     Route: 065
     Dates: start: 20150102
  20. VALSARTAN [Suspect]
     Active Substance: VALSARTAN
     Dosage: UNK
     Route: 065
     Dates: start: 20150611
  21. VALSARTAN [Suspect]
     Active Substance: VALSARTAN
     Dosage: UNK
     Route: 065
     Dates: start: 20160427
  22. VALSARTAN [Suspect]
     Active Substance: VALSARTAN
     Dosage: UNK
     Route: 065
     Dates: start: 20160804
  23. HYDROCHLOROTHIAZIDE\VALSARTAN [Suspect]
     Active Substance: HYDROCHLOROTHIAZIDE\VALSARTAN
     Indication: Hypertension
     Dosage: UNK
     Route: 065
     Dates: start: 20160427
  24. HYDROCHLOROTHIAZIDE\VALSARTAN [Suspect]
     Active Substance: HYDROCHLOROTHIAZIDE\VALSARTAN
     Dosage: UNK
     Route: 065
     Dates: start: 20170112
  25. HYDROCHLOROTHIAZIDE\VALSARTAN [Suspect]
     Active Substance: HYDROCHLOROTHIAZIDE\VALSARTAN
     Dosage: 1 DOSAGE FORM, QD  (IN MORNING, 1-0-0) START DATE OCT 2014, STOP DATE APR 2017
     Route: 065
  26. HYDROCHLOROTHIAZIDE\VALSARTAN [Suspect]
     Active Substance: HYDROCHLOROTHIAZIDE\VALSARTAN
     Dosage: 1 DOSAGE FORM, QD  (IN MORNING, 1-0-0) START DATE JUL 2014, STOP DATE JUL 2014
     Route: 065
  27. HYDROCHLOROTHIAZIDE\VALSARTAN [Suspect]
     Active Substance: HYDROCHLOROTHIAZIDE\VALSARTAN
     Dosage: UNK
     Route: 065
     Dates: start: 20150415
  28. HYDROCHLOROTHIAZIDE\VALSARTAN [Suspect]
     Active Substance: HYDROCHLOROTHIAZIDE\VALSARTAN
     Dosage: UNK
     Route: 065
     Dates: start: 20141014
  29. HYDROCHLOROTHIAZIDE\VALSARTAN [Suspect]
     Active Substance: HYDROCHLOROTHIAZIDE\VALSARTAN
     Dosage: UNK
     Route: 065
     Dates: start: 20140707
  30. HYDROCHLOROTHIAZIDE\VALSARTAN [Suspect]
     Active Substance: HYDROCHLOROTHIAZIDE\VALSARTAN
     Dosage: UNK
     Route: 065
     Dates: start: 20150102
  31. HYDROCHLOROTHIAZIDE\VALSARTAN [Suspect]
     Active Substance: HYDROCHLOROTHIAZIDE\VALSARTAN
     Dosage: UNK
     Route: 065
     Dates: start: 20160804
  32. HYDROCHLOROTHIAZIDE\VALSARTAN [Suspect]
     Active Substance: HYDROCHLOROTHIAZIDE\VALSARTAN
     Dosage: UNK
     Route: 065
     Dates: start: 20150611
  33. HYDROCHLOROTHIAZIDE\VALSARTAN [Suspect]
     Active Substance: HYDROCHLOROTHIAZIDE\VALSARTAN
     Dosage: UNK UNK, QD
     Route: 065
     Dates: start: 20170725
  34. HYDROCHLOROTHIAZIDE\VALSARTAN [Suspect]
     Active Substance: HYDROCHLOROTHIAZIDE\VALSARTAN
     Dosage: UNK
     Route: 065
  35. BACLOFEN [Suspect]
     Active Substance: BACLOFEN
     Indication: Product used for unknown indication
     Dosage: UNK
     Route: 048
     Dates: start: 20170704, end: 20170712
  36. BACLOFEN [Suspect]
     Active Substance: BACLOFEN
     Dosage: UNK (25/20 MG IN MORNING, 20 MG IN NOON, 20 MG IN THE EVENING
     Route: 065
  37. BACLOFEN [Suspect]
     Active Substance: BACLOFEN
     Dosage: UNK  (125 UG/24 HOURS 2000 UG/ML VIA PUMP)
     Route: 065
     Dates: start: 20180228
  38. BACLOFEN [Suspect]
     Active Substance: BACLOFEN
     Dosage: 25 MILLIGRAM  (1-1-1-1 ONCE IN MORNING, NOON, AFTERNOON, EVENING)
     Route: 048
     Dates: start: 20180102
  39. BACLOFEN [Suspect]
     Active Substance: BACLOFEN
     Dosage: 200 MICROGRAM 200 UG, VIA PUMP
     Route: 058
  40. BACLOFEN [Suspect]
     Active Substance: BACLOFEN
     Dosage: 200 MICROGRAM 200 UG, VIA PUMP
     Route: 058
  41. BACLOFEN [Suspect]
     Active Substance: BACLOFEN
     Dosage: 200 MICROGRAM 200 UG/20 MG VIA PUMP (1-1-1)
     Route: 058
  42. BACLOFEN [Suspect]
     Active Substance: BACLOFEN
     Dosage: 200 MICROGRAM
     Route: 065
  43. BACLOFEN [Suspect]
     Active Substance: BACLOFEN
     Dosage: 80 MILLIGRAM, QD, (VIA PUMP)
     Route: 065
  44. BACLOFEN [Suspect]
     Active Substance: BACLOFEN
     Dosage: 50 MILLIGRAM, QD  (VIA PUMP)
     Route: 065
  45. DOXORUBICIN [Suspect]
     Active Substance: DOXORUBICIN
     Indication: Hodgkin^s disease
     Dosage: UNK 25 MG/M2 (DAY 1)
     Route: 065
     Dates: start: 20160113
  46. DOXORUBICIN [Suspect]
     Active Substance: DOXORUBICIN
     Dosage: UNK 25 MG/M2 (DAY 1 AND DAY 15) STOP DATE DEC 2015
     Route: 065
     Dates: start: 20151027
  47. PROCARBAZINE [Suspect]
     Active Substance: PROCARBAZINE
     Indication: Hodgkin^s disease
     Dosage: UNK 100 MG/M2 (200 MG), DAY 1-7, DAILY
     Route: 065
     Dates: start: 20190113, end: 20190119
  48. CYCLOPHOSPHAMIDE [Suspect]
     Active Substance: CYCLOPHOSPHAMIDE
     Indication: Hodgkin^s disease
     Dosage: UNK 750 MG/M2
     Route: 065
     Dates: start: 20160113
  49. NEULASTA [Suspect]
     Active Substance: PEGFILGRASTIM
     Indication: Neutropenia
     Dosage: UNK
     Route: 058
     Dates: start: 20151212, end: 20151212
  50. DACARBAZINE [Suspect]
     Active Substance: DACARBAZINE
     Indication: Hodgkin^s disease
     Dosage: UNK 375 MG/M2, DAY 1 AND DAY 15 (STOP DATE 12/2015)
     Route: 065
     Dates: start: 20151027
  51. LENOGRASTIM [Suspect]
     Active Substance: LENOGRASTIM
     Indication: Neutropenia
     Dosage: UNK, 1X 34, QD QD (STOP DATE 01/2016)
     Route: 065
     Dates: start: 20160120
  52. LENOGRASTIM [Suspect]
     Active Substance: LENOGRASTIM
     Dosage: UNK (START DATE AND STOP DATE 11/2015 )
     Route: 065
  53. LENOGRASTIM [Suspect]
     Active Substance: LENOGRASTIM
     Dosage: UNK (START DATE 11/2015)
     Route: 065
  54. LENOGRASTIM [Suspect]
     Active Substance: LENOGRASTIM
     Dosage: UNK, QD 1X 34, QD
     Route: 065
     Dates: start: 20160203, end: 20160205
  55. ETOPOSIDE [Suspect]
     Active Substance: ETOPOSIDE
     Indication: Hodgkin^s disease
     Dosage: UNK 100 MG/M2, DAY 1-3
     Route: 065
     Dates: start: 20160113
  56. BLEOMYCIN [Suspect]
     Active Substance: BLEOMYCIN SULFATE
     Indication: Hodgkin^s disease
     Dosage: UNK 25 MG/M2 (DAY 1)
     Route: 065
     Dates: start: 20160113
  57. BLEOMYCIN [Suspect]
     Active Substance: BLEOMYCIN SULFATE
     Dosage: UNK 25 MG/M2 (DAY 1 AND DAY 15) STOP DATE 12/2015
     Route: 065
     Dates: start: 20151027
  58. BLEOMYCIN [Suspect]
     Active Substance: BLEOMYCIN SULFATE
     Dosage: UNK (10 MG/M2, DAY 8)
     Route: 065
     Dates: start: 20160120
  59. PIRITRAMIDE [Suspect]
     Active Substance: PIRITRAMIDE
     Indication: Pain in extremity
     Dosage: 15 MILLIGRAM
     Route: 058
     Dates: start: 20150608
  60. VINCRISTINE [Suspect]
     Active Substance: VINCRISTINE
     Indication: Hodgkin^s disease
     Dosage: 2 MILLIGRAM ABSOLUTE, DAY 8
     Route: 065
     Dates: start: 20160120
  61. VINBLASTINE [Suspect]
     Active Substance: VINBLASTINE
     Indication: Hodgkin^s disease
     Dosage: UNK 6 MG/M2, (DAY 1 AND DAY 15)
     Route: 065
     Dates: start: 20151027
  62. MOTILIUM [Concomitant]
     Active Substance: DOMPERIDONE
     Indication: Product used for unknown indication
     Dosage: 10 MILLIGRAM, TID (10 MG, ONCE IN THE MORNING, NOON AND EVENING)
     Route: 048
  63. MOTILIUM [Concomitant]
     Active Substance: DOMPERIDONE
     Dosage: 1 DOSAGE FORM, QID (1 DF,SACHET, 4X DAILY)
     Route: 065
  64. CLONIDINE [Concomitant]
     Active Substance: CLONIDINE
     Indication: Hypertension
     Dosage: UNK, QD (BID (1X0.5 MG)
     Route: 065
  65. CLONIDINE [Concomitant]
     Active Substance: CLONIDINE
     Dosage: 0.3 MICROGRAM, QD (0.15 UG, BID (1-0-1 IN MORNINGA AND EVENING)
     Route: 065
  66. CLONIDINE [Concomitant]
     Active Substance: CLONIDINE
     Dosage: 1 MILLIGRAM, QD, 0.5 MG, BID (2X 0.5 MG
     Route: 065
  67. CHOLECALCIFEROL [Concomitant]
     Active Substance: CHOLECALCIFEROL
     Indication: Product used for unknown indication
     Dosage: 100 MILLIGRAM, QD (IN MORNING)
     Route: 048
  68. CLORAZEPATE DIPOTASSIUM [Concomitant]
     Active Substance: CLORAZEPATE DIPOTASSIUM
     Indication: Product used for unknown indication
     Dosage: 10 MILLIGRAM, QD 10 MG, QD (1X 10 MG, QD, 1X DAILY (MORNING)
     Route: 065
  69. CLORAZEPATE DIPOTASSIUM [Concomitant]
     Active Substance: CLORAZEPATE DIPOTASSIUM
     Dosage: 15 MILLIGRAM, QD 15 MG, QD (1X 15 MG, QD, 1X DAILY (EVENING OR NIGHT)
     Route: 065
  70. CLORAZEPATE DIPOTASSIUM [Concomitant]
     Active Substance: CLORAZEPATE DIPOTASSIUM
     Dosage: 20 MILLIGRAM, QD 10 MG, BID (1X 10 MG, BID, 2X DAILY (MORNING AND EVENING)
     Route: 065
  71. PANTOZOL [Concomitant]
     Active Substance: PANTOPRAZOLE SODIUM
     Indication: Product used for unknown indication
     Dosage: UNK, QD (1X 40, 1X DAILY (EVENING))
     Route: 065
  72. PANTOZOL [Concomitant]
     Active Substance: PANTOPRAZOLE SODIUM
     Dosage: 40 MILLIGRAM, QD (40 MG, QD)
     Route: 065
  73. PANTOZOL [Concomitant]
     Active Substance: PANTOPRAZOLE SODIUM
     Dosage: UNK UNK, QD 1X 40, 1X DAILY (MORNING)
     Route: 065
  74. MOVICOL [Concomitant]
     Active Substance: POLYETHYLENE GLYCOL 3350\POTASSIUM CHLORIDE\SODIUM BICARBONATE\SODIUM CHLORIDE
     Indication: Product used for unknown indication
     Dosage: 1 DOSAGE FORM (1 DF, SACHET, 1X IF NEEDED)
     Route: 065
  75. HYDROMORPHONE [Concomitant]
     Active Substance: HYDROMORPHONE
     Indication: Product used for unknown indication
     Dosage: 60 MILLIGRAM, QD (8 MG, BID), STOP DATE NOV 2015
     Route: 065
  76. CITALOPRAM [Concomitant]
     Active Substance: CITALOPRAM HYDROBROMIDE
     Indication: Product used for unknown indication
     Dosage: UNK, QD 1X 20, 1X DAILY (MORNING)
     Route: 065
  77. MORPHINE [Concomitant]
     Active Substance: MORPHINE
     Indication: Pain
     Dosage: UNK UNK, VIA PUMP
     Route: 065
  78. VALSARTAN [Concomitant]
     Active Substance: VALSARTAN
     Indication: Hypertension
     Dosage: UNK
     Route: 065
     Dates: start: 20130124
  79. VALSARTAN [Concomitant]
     Active Substance: VALSARTAN
     Dosage: UNK (START DATE 01/2013)160 MG / 12.5 MG
     Route: 065
  80. LYRICA [Concomitant]
     Active Substance: PREGABALIN
     Indication: Product used for unknown indication
     Dosage: UNK UNK, QD (1X 75, 1X DAILY (EVENING), START DATE: FEB/MAR 2016)
     Route: 065
  81. LYRICA [Concomitant]
     Active Substance: PREGABALIN
     Dosage: UNK (1X 150, 1X, STOP DATE: FEB/MAR 2016)
     Route: 065
  82. LYRICA [Concomitant]
     Active Substance: PREGABALIN
     Dosage: UNK UNK, QD (2X 75, 1X DAILY (MORNING), START DATE: FEB/MAR 2016)
     Route: 065
  83. LYRICA [Concomitant]
     Active Substance: PREGABALIN
     Dosage: UNK UNK, BID1X 150, 2X DAILY (MORNING AND EVENING)
     Route: 065
  84. LYRICA [Concomitant]
     Active Substance: PREGABALIN
     Dosage: UNK UNK, BID1X 150, 2X DAILY (MORNING AND EVENING)
     Route: 065
  85. LYRICA [Concomitant]
     Active Substance: PREGABALIN
     Dosage: UNK 2X 75, 1X DAILY (MORNING), START DATE: FEB/MAR 2016
     Route: 065
  86. SULFAMETHOXAZOLE\TRIMETHOPRIM [Concomitant]
     Active Substance: SULFAMETHOXAZOLE\TRIMETHOPRIM
     Indication: Pneumonia
     Dosage: 2 DOSAGE FORM, QD
     Route: 065
  87. SULFAMETHOXAZOLE\TRIMETHOPRIM [Concomitant]
     Active Substance: SULFAMETHOXAZOLE\TRIMETHOPRIM
     Dosage: UNK
     Route: 065
  88. ENOXAPARIN SODIUM [Concomitant]
     Active Substance: ENOXAPARIN SODIUM
     Indication: Thrombosis prophylaxis
     Dosage: 40 MILLIGRAM, QD
     Route: 058
  89. HYDROCHLOROTHIAZIDE\VALSARTAN [Concomitant]
     Active Substance: HYDROCHLOROTHIAZIDE\VALSARTAN
     Indication: Hypertension
     Dosage: UNK (START DATE, APR 2017, STOP DATE 2017, 160 MG / 12.5 MG)
     Route: 065
  90. HYDROCHLOROTHIAZIDE\VALSARTAN [Concomitant]
     Active Substance: HYDROCHLOROTHIAZIDE\VALSARTAN
     Dosage: UNK
     Route: 065
     Dates: start: 20170725
  91. HYDROCHLOROTHIAZIDE\VALSARTAN [Concomitant]
     Active Substance: HYDROCHLOROTHIAZIDE\VALSARTAN
     Dosage: UNK
     Route: 065
     Dates: start: 20170411
  92. LEVOTHYROXINE [Concomitant]
     Active Substance: LEVOTHYROXINE
     Indication: Product used for unknown indication
     Dosage: UNK
     Route: 065

REACTIONS (76)
  - Hodgkin^s disease [Unknown]
  - Back pain [Recovering/Resolving]
  - Lymphadenopathy [Recovering/Resolving]
  - Urinary tract infection [Unknown]
  - Hyperpyrexia [Unknown]
  - Bone pain [Unknown]
  - Spinal pain [Unknown]
  - Dyspnoea [Recovering/Resolving]
  - Pneumonia [Unknown]
  - Pain in extremity [Recovering/Resolving]
  - Red blood cell sedimentation rate increased [Unknown]
  - Vomiting [Recovering/Resolving]
  - Dysphagia [Unknown]
  - Hypothyroidism [Unknown]
  - Pain [Recovering/Resolving]
  - Pyrexia [Recovered/Resolved]
  - Splenomegaly [Unknown]
  - Klebsiella infection [Unknown]
  - Tissue infiltration [Unknown]
  - Basal ganglion degeneration [Unknown]
  - Pulmonary congestion [Unknown]
  - General physical health deterioration [Unknown]
  - Viral infection [Unknown]
  - Candida infection [Unknown]
  - Sepsis [Unknown]
  - Inflammation [Recovering/Resolving]
  - Muscle spasticity [Unknown]
  - Psychogenic seizure [Unknown]
  - Tenderness [Unknown]
  - Somnolence [Recovering/Resolving]
  - Loss of consciousness [Unknown]
  - Headache [Unknown]
  - Tremor [Unknown]
  - Respiratory failure [Unknown]
  - Fall [Unknown]
  - Pyrexia [Recovered/Resolved]
  - Speech disorder [Recovering/Resolving]
  - Monoplegia [Unknown]
  - Neurological decompensation [Recovering/Resolving]
  - Haematoma [Unknown]
  - Intervertebral disc disorder [Unknown]
  - Hypokinesia [Not Recovered/Not Resolved]
  - Device malfunction [Unknown]
  - Anaphylactic reaction [Unknown]
  - Neoplasm malignant [Unknown]
  - Tachycardia [Unknown]
  - Drug intolerance [Unknown]
  - Sleep apnoea syndrome [Unknown]
  - Myalgia [Unknown]
  - Fall [Recovered/Resolved]
  - Renal cyst [Unknown]
  - Obesity [Unknown]
  - Inguinal hernia [Unknown]
  - Drug hypersensitivity [Unknown]
  - Arthralgia [Unknown]
  - Dysaesthesia [Recovering/Resolving]
  - Hyperventilation [Unknown]
  - Abdominal tenderness [Unknown]
  - Hepatic steatosis [Unknown]
  - Hypochromic anaemia [Unknown]
  - Lung disorder [Unknown]
  - Hypoaesthesia [Recovering/Resolving]
  - Hyperhidrosis [Unknown]
  - Sleep disorder [Unknown]
  - Anaesthesia [Recovering/Resolving]
  - Uterine enlargement [Unknown]
  - Emotional distress [Unknown]
  - Fear [Unknown]
  - Fatigue [Unknown]
  - Neutropenia [Recovering/Resolving]
  - Cough [Unknown]
  - Fatigue [Unknown]
  - Dizziness [Unknown]
  - Nausea [Recovering/Resolving]
  - Drug abuse [Unknown]
  - Medication error [Unknown]

NARRATIVE: CASE EVENT DATE: 20150608
